FAERS Safety Report 7787853-4 (Version None)
Quarter: 2011Q3

REPORT INFORMATION
  Report Type: 
  Country: None (occurrence: None)
  Receive Date: 20110930
  Receipt Date: 20110921
  Transmission Date: 20111222
  Serious: No
  Sender: FDA-Public Use
  Company Number: US-BIOGENIDEC-2011BI006390

PATIENT
  Age: 39 Year
  Sex: Female

DRUGS (6)
  1. TOPAMAX [Concomitant]
     Indication: CHILLS
  2. TOPAMAX [Concomitant]
     Indication: BURNING SENSATION
  3. AVONEX [Concomitant]
     Route: 030
  4. TOPAMAX [Concomitant]
     Indication: PARAESTHESIA
  5. AVONEX [Concomitant]
     Indication: MULTIPLE SCLEROSIS
     Route: 030
     Dates: start: 19980101
  6. TYSABRI [Suspect]
     Indication: MULTIPLE SCLEROSIS
     Route: 042
     Dates: start: 20110210

REACTIONS (7)
  - ARTHRALGIA [None]
  - BURNING SENSATION [None]
  - PARAESTHESIA [None]
  - MEMORY IMPAIRMENT [None]
  - INFUSION SITE HAEMATOMA [None]
  - CHILLS [None]
  - DRUG INEFFECTIVE [None]
